FAERS Safety Report 15634616 (Version 2)
Quarter: 2018Q4

REPORT INFORMATION
  Report Type: Spontaneous
  Country: BR (occurrence: BR)
  Receive Date: 20181119
  Receipt Date: 20181128
  Transmission Date: 20190205
  Serious: Yes (Disabling)
  Sender: FDA-Public Use
  Company Number: BR-B.I. PHARMACEUTICALS,INC./RIDGEFIELD-2018-BI-055487

PATIENT
  Sex: Female
  Weight: 100 kg

DRUGS (15)
  1. SOMALGIN [Concomitant]
     Active Substance: ASPIRIN\DIHYDROXYALUMINUM AMINOACETATE ANHYDROUS\MAGNESIUM CARBONATE
     Indication: DRUG THERAPY
     Route: 048
  2. SOMALGIN [Concomitant]
     Active Substance: ASPIRIN\DIHYDROXYALUMINUM AMINOACETATE ANHYDROUS\MAGNESIUM CARBONATE
     Indication: DRUG THERAPY
  3. ROSUVASTATINA [Concomitant]
     Active Substance: ROSUVASTATIN
     Indication: LOW DENSITY LIPOPROTEIN ABNORMAL
     Route: 048
     Dates: start: 2015
  4. MICARDIS [Suspect]
     Active Substance: TELMISARTAN
     Indication: BLOOD PRESSURE ABNORMAL
     Dosage: UNIT DOSE AND DAILY DOSE: 80/5 MILLIGRAM
     Route: 048
     Dates: start: 2010, end: 2012
  5. ATENOLOL. [Concomitant]
     Active Substance: ATENOLOL
     Indication: HYPERTENSION
     Route: 048
  6. MICARDIS [Suspect]
     Active Substance: TELMISARTAN
     Dosage: UNIT DOSE: 80/5 MG AND DAILY DOSE- 160/10 MG
     Route: 048
     Dates: start: 2012
  7. SOMALGIN [Concomitant]
     Active Substance: ASPIRIN\DIHYDROXYALUMINUM AMINOACETATE ANHYDROUS\MAGNESIUM CARBONATE
     Indication: INFARCTION
  8. ROSUVASTATINA [Concomitant]
     Active Substance: ROSUVASTATIN
     Indication: HIGH DENSITY LIPOPROTEIN ABNORMAL
  9. ALENIA [Concomitant]
     Active Substance: BUDESONIDE\FORMOTEROL FUMARATE
     Indication: BRONCHITIS
     Route: 055
     Dates: start: 2014
  10. ISORDIL [Concomitant]
     Active Substance: ISOSORBIDE DINITRATE
     Indication: CHEST PAIN
     Route: 060
  11. ALPRAZOLAM. [Concomitant]
     Active Substance: ALPRAZOLAM
     Indication: SEDATIVE THERAPY
     Route: 048
  12. SOMALGIN [Concomitant]
     Active Substance: ASPIRIN\DIHYDROXYALUMINUM AMINOACETATE ANHYDROUS\MAGNESIUM CARBONATE
     Indication: CAROTID ARTERY OCCLUSION
  13. ROSUVASTATINA [Concomitant]
     Active Substance: ROSUVASTATIN
     Indication: CAROTID ARTERY OCCLUSION
  14. ROSUVASTATINA [Concomitant]
     Active Substance: ROSUVASTATIN
     Indication: INFARCTION
  15. METFORMINA [Concomitant]
     Active Substance: METFORMIN HYDROCHLORIDE
     Indication: DIABETES MELLITUS
     Route: 048
     Dates: start: 1998

REACTIONS (5)
  - Astigmatism [Recovered/Resolved]
  - Blood pressure increased [Unknown]
  - Memory impairment [Not Recovered/Not Resolved]
  - Headache [Not Recovered/Not Resolved]
  - Drug ineffective [Not Recovered/Not Resolved]

NARRATIVE: CASE EVENT DATE: 2010
